FAERS Safety Report 20751638 (Version 1)
Quarter: 2022Q2

REPORT INFORMATION
  Report Type: Spontaneous
  Country: US (occurrence: US)
  Receive Date: 20220426
  Receipt Date: 20220426
  Transmission Date: 20220721
  Serious: No
  Sender: FDA-Public Use
  Company Number: US-PFIZER INC-202101042405

PATIENT
  Age: 69 Year
  Sex: Female
  Weight: 53.07 kg

DRUGS (2)
  1. RELPAX [Suspect]
     Active Substance: ELETRIPTAN HYDROBROMIDE
     Indication: Migraine
     Dosage: 40 MG, 1 TABLET BY MOUTH AT ONSET OF HEADACHE; IF IT DOESN^T TAKE HEADACHE AWAY CAN TAKE 1 IN 2HRS
     Route: 048
  2. RELPAX [Suspect]
     Active Substance: ELETRIPTAN HYDROBROMIDE
     Dosage: 40 MG, 1 TABLET BY MOUTH AT ONSET OF HEADACHE; IF IT DOESN^T TAKE HEADACHE AWAY CAN TAKE 1 IN 2HRS
     Route: 048

REACTIONS (2)
  - Migraine [Not Recovered/Not Resolved]
  - Expired product administered [Not Recovered/Not Resolved]

NARRATIVE: CASE EVENT DATE: 20210101
